FAERS Safety Report 15969107 (Version 1)
Quarter: 2019Q1

REPORT INFORMATION
  Report Type: Spontaneous
  Country: NL (occurrence: NL)
  Receive Date: 20190215
  Receipt Date: 20190215
  Transmission Date: 20190418
  Serious: Yes (Other)
  Sender: FDA-Public Use
  Company Number: NL-MYLANLABS-2019M1013369

PATIENT
  Age: 48 Year
  Sex: Female

DRUGS (3)
  1. CARBOPLATIN. [Suspect]
     Active Substance: CARBOPLATIN
     Indication: FALLOPIAN TUBE CANCER
     Dosage: 400 MG/M2, 4X/CYC
  2. THIOTEPA. [Suspect]
     Active Substance: THIOTEPA
     Indication: FALLOPIAN TUBE CANCER
     Dosage: 60 MG/M2, 2X/DAY
     Route: 042
  3. CYCLOPHOSPHAMIDE. [Suspect]
     Active Substance: CYCLOPHOSPHAMIDE
     Indication: FALLOPIAN TUBE CANCER
     Dosage: 1500 MG/M2, 4X CYC

REACTIONS (6)
  - Renal failure [Unknown]
  - Hypertension [Recovered/Resolved]
  - Bacteraemia [Recovered/Resolved]
  - Haemolytic uraemic syndrome [Recovered/Resolved]
  - Microangiopathic haemolytic anaemia [Unknown]
  - Hepatic enzyme increased [Unknown]
